FAERS Safety Report 20783131 (Version 1)
Quarter: 2022Q2

REPORT INFORMATION
  Report Type: Other
  Country: CA (occurrence: None)
  Receive Date: 20220504
  Receipt Date: 20220504
  Transmission Date: 20220721
  Serious: Yes (Other)
  Sender: FDA-Public Use
  Company Number: CA-ROCHE-3089571

PATIENT
  Sex: Female
  Weight: 65 kg

DRUGS (24)
  1. ACTEMRA [Suspect]
     Active Substance: TOCILIZUMAB
     Indication: Rheumatoid arthritis
     Route: 042
     Dates: start: 20140204, end: 20210721
  2. ACTEMRA [Suspect]
     Active Substance: TOCILIZUMAB
     Route: 042
     Dates: start: 20210826
  3. TRAZODONE [Suspect]
     Active Substance: TRAZODONE HYDROCHLORIDE
     Indication: Product used for unknown indication
     Route: 065
     Dates: start: 2013, end: 201405
  4. SERTRALINE [Suspect]
     Active Substance: SERTRALINE HYDROCHLORIDE
     Indication: Emotional disorder
     Route: 048
     Dates: start: 2013
  5. HYDROCHLOROTHIAZIDE [Suspect]
     Active Substance: HYDROCHLOROTHIAZIDE
     Indication: Product used for unknown indication
     Route: 065
  6. HYDROCHLOROTHIAZIDE [Suspect]
     Active Substance: HYDROCHLOROTHIAZIDE
     Dosage: 1/2 TABLET
     Route: 065
  7. PREDNISONE [Concomitant]
     Active Substance: PREDNISONE
  8. PREDNISONE [Concomitant]
     Active Substance: PREDNISONE
  9. FOLIC ACID [Concomitant]
     Active Substance: FOLIC ACID
     Indication: Product used for unknown indication
     Dates: start: 20140206
  10. TRAZODONE [Concomitant]
     Active Substance: TRAZODONE HYDROCHLORIDE
  11. RAMIPRIL [Concomitant]
     Active Substance: RAMIPRIL
  12. ALPRAZOLAM [Concomitant]
     Active Substance: ALPRAZOLAM
  13. AMLODIPINE [Concomitant]
     Active Substance: AMLODIPINE BESYLATE
  14. VENTOLIN [Concomitant]
     Active Substance: ALBUTEROL SULFATE
  15. SYSTANE (HYPROMELLOSE 2910 (4000 MPA.S)) [Concomitant]
     Active Substance: HYPROMELLOSE 2910 (4000 MPA.S)
  16. METHOTREXATE [Concomitant]
     Active Substance: METHOTREXATE
     Indication: Product used for unknown indication
  17. ENDOCET [Concomitant]
     Active Substance: ACETAMINOPHEN\OXYCODONE HYDROCHLORIDE
  18. FOSAVANCE [Concomitant]
     Active Substance: ALENDRONATE SODIUM\CHOLECALCIFEROL
  19. METROGEL [Concomitant]
     Active Substance: METRONIDAZOLE
     Dosage: FOR 10 DAYS AS NEEDED
  20. VOLTAREN [Concomitant]
     Active Substance: DICLOFENAC SODIUM
  21. BACLOFEN [Concomitant]
     Active Substance: BACLOFEN
     Indication: Product used for unknown indication
     Dosage: 10 MG 1 TAB TID PRN
     Route: 048
  22. OXYCODONE [Concomitant]
     Active Substance: OXYCODONE
     Indication: Product used for unknown indication
  23. CIPRO [Concomitant]
     Active Substance: CIPROFLOXACIN HYDROCHLORIDE
     Indication: Cystitis
  24. CALCIUM [Concomitant]
     Active Substance: CALCIUM

REACTIONS (82)
  - Emotional disorder [Unknown]
  - Lower limb fracture [Unknown]
  - Tremor [Recovered/Resolved]
  - Muscle spasms [Unknown]
  - Chills [Unknown]
  - Headache [Not Recovered/Not Resolved]
  - Fatigue [Unknown]
  - Urinary tract infection [Unknown]
  - Abdominal discomfort [Unknown]
  - Mouth ulceration [Not Recovered/Not Resolved]
  - Pyrexia [Not Recovered/Not Resolved]
  - Nausea [Recovered/Resolved]
  - Asthenia [Not Recovered/Not Resolved]
  - Arthralgia [Unknown]
  - Insomnia [Not Recovered/Not Resolved]
  - Mobility decreased [Not Recovered/Not Resolved]
  - Arthralgia [Not Recovered/Not Resolved]
  - Heart rate decreased [Unknown]
  - Night sweats [Recovering/Resolving]
  - Hot flush [Not Recovered/Not Resolved]
  - Abdominal pain [Recovered/Resolved]
  - Diarrhoea [Recovered/Resolved]
  - Oral herpes [Not Recovered/Not Resolved]
  - Infusion related reaction [Unknown]
  - Blood glucose increased [Unknown]
  - Acne [Not Recovered/Not Resolved]
  - Foot deformity [Not Recovered/Not Resolved]
  - Joint swelling [Unknown]
  - Dizziness [Unknown]
  - Tendonitis [Unknown]
  - Hypotension [Not Recovered/Not Resolved]
  - Body temperature decreased [Unknown]
  - Gastroenteritis viral [Recovered/Resolved]
  - Dyspnoea [Unknown]
  - Epicondylitis [Recovering/Resolving]
  - Headache [Unknown]
  - Joint swelling [Not Recovered/Not Resolved]
  - Oedema peripheral [Not Recovered/Not Resolved]
  - Ill-defined disorder [Not Recovered/Not Resolved]
  - Food poisoning [Recovered/Resolved]
  - Noninfective gingivitis [Recovered/Resolved]
  - Abdominal pain lower [Recovered/Resolved]
  - Fatigue [Not Recovered/Not Resolved]
  - Respiratory rate increased [Unknown]
  - Oxygen saturation decreased [Unknown]
  - Gingival swelling [Recovered/Resolved]
  - Gingival pain [Recovered/Resolved]
  - Stomatitis [Recovered/Resolved]
  - Migraine [Not Recovered/Not Resolved]
  - Cough [Recovering/Resolving]
  - Lower respiratory tract congestion [Recovering/Resolving]
  - Nasopharyngitis [Recovered/Resolved]
  - Ear infection [Recovered/Resolved]
  - Pharyngitis [Recovered/Resolved]
  - Ligament sprain [Not Recovered/Not Resolved]
  - Weight decreased [Recovering/Resolving]
  - Injection site swelling [Recovered/Resolved]
  - Rheumatoid arthritis [Recovering/Resolving]
  - Cystitis [Unknown]
  - Illness [Not Recovered/Not Resolved]
  - Injection site pain [Recovered/Resolved]
  - Infusion related reaction [Unknown]
  - Blood pressure systolic increased [Unknown]
  - Stomatitis [Recovered/Resolved]
  - Fibromyalgia [Not Recovered/Not Resolved]
  - Pain [Not Recovered/Not Resolved]
  - Blood pressure increased [Unknown]
  - Blood pressure diastolic decreased [Unknown]
  - Lower respiratory tract infection [Recovered/Resolved]
  - Influenza [Recovered/Resolved]
  - Blood pressure systolic abnormal [Unknown]
  - Off label use [Unknown]
  - Pain in jaw [Not Recovered/Not Resolved]
  - Gingival disorder [Not Recovered/Not Resolved]
  - Heart rate decreased [Unknown]
  - Hot flush [Not Recovered/Not Resolved]
  - Vomiting [Unknown]
  - Dyspepsia [Unknown]
  - Pyrexia [Unknown]
  - Retching [Unknown]
  - Diarrhoea [Unknown]
  - Nausea [Unknown]

NARRATIVE: CASE EVENT DATE: 20140101
